FAERS Safety Report 8820405 (Version 1)
Quarter: 2012Q4

REPORT INFORMATION
  Report Type: 
  Country: GB (occurrence: US)
  Receive Date: 20121002
  Receipt Date: 20121002
  Transmission Date: 20130627
  Serious: No
  Sender: FDA-Public Use
  Company Number: US-009507513-1210USA000018

PATIENT
  Sex: Female
  Weight: 63.49 kg

DRUGS (2)
  1. PEG-INTRON [Suspect]
     Dosage: Peg-intron Redipen(4 syringe pack)120 microgram/0.5 ml
  2. RIBAPAK [Concomitant]
     Dosage: RIBAPAK PAK 1000/day

REACTIONS (1)
  - Rash [Unknown]
